FAERS Safety Report 4543857-6 (Version None)
Quarter: 2004Q4

REPORT INFORMATION
  Report Type: 
  Country: None (occurrence: None)
  Receive Date: 20041229
  Receipt Date: 20041229
  Transmission Date: 20050328
  Serious: Yes (Hospitalization)
  Sender: FDA-Public Use
  Company Number: None

PATIENT
  Age: 31 Year
  Sex: Female
  Weight: 88.905 kg

DRUGS (2)
  1. ARAVA [Suspect]
     Indication: RHEUMATOID ARTHRITIS
     Dosage: 100 MG X 3 DAYS 20 MG QD AFTER
     Dates: start: 20041101
  2. .. [Concomitant]

REACTIONS (2)
  - DYSPNOEA [None]
  - LUNG INJURY [None]
